FAERS Safety Report 13937941 (Version 1)
Quarter: 2017Q3

REPORT INFORMATION
  Report Type: Spontaneous
  Country: US (occurrence: US)
  Receive Date: 20170905
  Receipt Date: 20170905
  Transmission Date: 20171127
  Serious: Yes (Other)
  Sender: FDA-Public Use
  Company Number: US-PFIZER INC-2016581900

PATIENT
  Age: 81 Year
  Sex: Male
  Weight: 78 kg

DRUGS (5)
  1. XALKORI [Suspect]
     Active Substance: CRIZOTINIB
     Dosage: UNK
  2. LORATADINE. [Concomitant]
     Active Substance: LORATADINE
     Indication: SEASONAL ALLERGY
     Dosage: 10 MG, 1X/DAY, CRUSHED VIA FEEDING TUBE
  3. XALKORI [Suspect]
     Active Substance: CRIZOTINIB
     Dosage: UNK
  4. OMEPRAZOLE. [Concomitant]
     Active Substance: OMEPRAZOLE
     Indication: HYPERCHLORHYDRIA
     Dosage: 1 DF, DAILY, CRUSHED VIA FEEDING TUBE
  5. XALKORI [Suspect]
     Active Substance: CRIZOTINIB
     Indication: LUNG NEOPLASM MALIGNANT
     Dosage: 250 MG, 2X/DAY, CONTENT OF CAPSULE, THROUGH FEEDING TUBE
     Dates: start: 2016

REACTIONS (8)
  - Wrong technique in product usage process [Unknown]
  - Lip disorder [Not Recovered/Not Resolved]
  - Cough [Not Recovered/Not Resolved]
  - Diarrhoea [Not Recovered/Not Resolved]
  - Incorrect route of drug administration [Unknown]
  - Nephrolithiasis [Not Recovered/Not Resolved]
  - Dry throat [Not Recovered/Not Resolved]
  - Dry mouth [Not Recovered/Not Resolved]

NARRATIVE: CASE EVENT DATE: 2016
